FAERS Safety Report 5350989-1 (Version None)
Quarter: 2007Q2

REPORT INFORMATION
  Report Type: 
  Country: None (occurrence: None)
  Receive Date: 20070606
  Receipt Date: 20070530
  Transmission Date: 20071010
  Serious: Yes (Hospitalization)
  Sender: FDA-Public Use
  Company Number: TAP2007Q00704

PATIENT
  Age: 87 Year
  Sex: Male
  Weight: 79.54 kg

DRUGS (3)
  1. LUPRON DEPOT-4 [Suspect]
     Indication: PROSTATE CANCER
     Dosage: 30 MG, 1 IN 4 M, INTRAMUSCULAR
     Route: 030
     Dates: start: 20070401
  2. PREVPAC [Suspect]
     Indication: HELICOBACTER INFECTION
     Dosage: PER ORAL
     Route: 048
     Dates: start: 20070507
  3. INSULIN [Suspect]
     Indication: DIABETES MELLITUS INSULIN-DEPENDENT
     Dosage: SUBCUTANEOUS
     Route: 058

REACTIONS (7)
  - ASTHENIA [None]
  - CONVULSION [None]
  - DIPLOPIA [None]
  - DRUG INTERACTION [None]
  - TREMOR [None]
  - VISION BLURRED [None]
  - VOMITING [None]
